FAERS Safety Report 8172153-3 (Version None)
Quarter: 2012Q1

REPORT INFORMATION
  Report Type: 
  Country: None (occurrence: None)
  Receive Date: 20120228
  Receipt Date: 20120223
  Transmission Date: 20120608
  Serious: Yes (Death, Other)
  Sender: FDA-Public Use
  Company Number: JP-MERCK-1202USA02860

PATIENT
  Age: 72 Year
  Sex: Male
  Weight: 89 kg

DRUGS (4)
  1. TRETINOIN [Suspect]
     Indication: ACUTE PROMYELOCYTIC LEUKAEMIA
     Dosage: 45MG/M2
     Route: 048
  2. IDARUBICIN HYDROCHLORIDE [Suspect]
     Indication: ACUTE PROMYELOCYTIC LEUKAEMIA
     Route: 042
  3. DECADRON [Suspect]
     Indication: RETINOIC ACID SYNDROME
     Route: 048
  4. INSULIN [Concomitant]
     Route: 042

REACTIONS (3)
  - DIABETES MELLITUS [None]
  - ZYGOMYCOSIS [None]
  - PNEUMONIA [None]
